FAERS Safety Report 24713951 (Version 1)
Quarter: 2024Q4

REPORT INFORMATION
  Report Type: Spontaneous
  Country: US (occurrence: US)
  Receive Date: 20241209
  Receipt Date: 20241209
  Transmission Date: 20250115
  Serious: No
  Sender: REGENERON
  Company Number: US-REGENERON PHARMACEUTICALS, INC.-2024-084385

PATIENT
  Sex: Male

DRUGS (1)
  1. EYLEA [Suspect]
     Active Substance: AFLIBERCEPT
     Indication: Diabetic retinopathy
     Dosage: 2 MG EVERY MONTH AS NEEDED, FORMULATION: PREFILLED SYRINGE ( GERRESHEIMER)
     Dates: start: 20230511, end: 20231116

REACTIONS (1)
  - Product dose omission issue [Unknown]
